FAERS Safety Report 5845867-5 (Version None)
Quarter: 2008Q3

REPORT INFORMATION
  Report Type: 
  Country: None (occurrence: None)
  Receive Date: 20080814
  Receipt Date: 20080808
  Transmission Date: 20090109
  Serious: No
  Sender: FDA-Public Use
  Company Number: US-BOEHRINGER INGELHEIM GMBH, GERMANY-2008-BP-12538BP

PATIENT
  Age: 67 Year
  Sex: Female

DRUGS (1)
  1. AGGRENOX [Suspect]
     Route: 048
     Dates: start: 20080530

REACTIONS (1)
  - DYSGEUSIA [None]
